FAERS Safety Report 5845380-5 (Version None)
Quarter: 2008Q3

REPORT INFORMATION
  Report Type: 
  Country: None (occurrence: None)
  Receive Date: 20080814
  Receipt Date: 20080805
  Transmission Date: 20090109
  Serious: Yes (Hospitalization)
  Sender: FDA-Public Use
  Company Number: US-MERCK-0808USA01021

PATIENT
  Age: 50 Year
  Sex: Male

DRUGS (4)
  1. ISENTRESS [Suspect]
     Indication: HIV INFECTION
     Route: 048
     Dates: start: 20080301
  2. TRUVADA [Suspect]
     Route: 065
     Dates: start: 20080301
  3. INTELENCE [Suspect]
     Route: 065
     Dates: start: 20080301
  4. PREZISTA [Suspect]
     Route: 065
     Dates: start: 20080301

REACTIONS (2)
  - EATING DISORDER [None]
  - STOMATITIS [None]
